FAERS Safety Report 24240277 (Version 13)
Quarter: 2025Q2

REPORT INFORMATION
  Report Type: Report from Study
  Country: CA (occurrence: CA)
  Receive Date: 20240822
  Receipt Date: 20250620
  Transmission Date: 20250716
  Serious: Yes (Hospitalization, Other)
  Sender: BAUSCH AND LOMB
  Company Number: CA-BAUSCH-BL-2023-011636

PATIENT
  Age: 32 Year
  Sex: Female

DRUGS (4)
  1. SILIQ [Suspect]
     Active Substance: BRODALUMAB
     Indication: Psoriasis
     Dosage: 210MG/1.5ML, WEEKLY (WEEK 0 - WEEK 2)
     Route: 058
     Dates: start: 20230720, end: 20230803
  2. SILIQ [Suspect]
     Active Substance: BRODALUMAB
     Dosage: 210MG/1.5ML, Q 2 WEEKS
     Route: 058
     Dates: start: 202308, end: 20240816
  3. SILIQ [Suspect]
     Active Substance: BRODALUMAB
     Dosage: 210MG/1.5ML, Q 2 WEEKS
     Route: 058
     Dates: end: 20250121
  4. SILIQ [Suspect]
     Active Substance: BRODALUMAB
     Dosage: 210MG/1.5ML, Q 2 WEEKS
     Route: 058
     Dates: start: 20250212

REACTIONS (22)
  - Abortion spontaneous [Unknown]
  - Pneumonia [Recovered/Resolved]
  - Urticaria [Recovered/Resolved]
  - Infection [Recovered/Resolved]
  - Depression [Unknown]
  - Psoriasis [Recovered/Resolved]
  - Disease recurrence [Recovered/Resolved]
  - Ill-defined disorder [Not Recovered/Not Resolved]
  - Increased tendency to bruise [Recovered/Resolved]
  - Fear of injection [Not Recovered/Not Resolved]
  - Depressed mood [Not Recovered/Not Resolved]
  - Impaired healing [Recovered/Resolved]
  - Pruritus [Not Recovered/Not Resolved]
  - Rash pruritic [Recovered/Resolved]
  - Arthralgia [Recovering/Resolving]
  - COVID-19 [Recovered/Resolved]
  - Injection site pain [Unknown]
  - Headache [Not Recovered/Not Resolved]
  - Maternal exposure during pregnancy [Unknown]
  - Insurance issue [Unknown]
  - Therapy interrupted [Unknown]
  - Product dose omission issue [Unknown]

NARRATIVE: CASE EVENT DATE: 20230101
